APPROVED DRUG PRODUCT: MONTELUKAST SODIUM
Active Ingredient: MONTELUKAST SODIUM
Strength: EQ 4MG BASE/PACKET
Dosage Form/Route: GRANULE;ORAL
Application: A202906 | Product #001 | TE Code: AB
Applicant: DR REDDYS LABORATORIES LTD
Approved: Sep 17, 2012 | RLD: No | RS: No | Type: RX